FAERS Safety Report 17229581 (Version 1)
Quarter: 2019Q4

REPORT INFORMATION
  Report Type: Spontaneous
  Country: US (occurrence: US)
  Receive Date: 20191210
  Receipt Date: 20191210
  Transmission Date: 20200122
  Serious: Yes (Hospitalization)
  Sender: FDA-Public Use
  Company Number: None

PATIENT
  Age: 70 Year
  Sex: Male
  Weight: 116 kg

DRUGS (2)
  1. DULOXETINE (DULOXETINE HCL 30MG CAP, ORAL) [Suspect]
     Active Substance: DULOXETINE
     Indication: NEUROPATHY PERIPHERAL
     Dosage: ?          OTHER FREQUENCY:AM;?
     Route: 054
     Dates: start: 20180807, end: 20190308
  2. DULOXETINE (DULOXETINE HCL 30MG CAP, ORAL) [Suspect]
     Active Substance: DULOXETINE
     Indication: DEPRESSION
     Dosage: ?          OTHER FREQUENCY:AM;?
     Route: 054
     Dates: start: 20180807, end: 20190308

REACTIONS (2)
  - Seizure [None]
  - Hypertension [None]

NARRATIVE: CASE EVENT DATE: 20190308
